FAERS Safety Report 5976657-0 (Version None)
Quarter: 2008Q4

REPORT INFORMATION
  Report Type: 
  Country: None (occurrence: None)
  Receive Date: 20081203
  Receipt Date: 20081201
  Transmission Date: 20090506
  Serious: Yes (Other)
  Sender: FDA-Public Use
  Company Number: CA-JNJFOC-20081106502

PATIENT
  Sex: Male

DRUGS (2)
  1. LEVAQUIN [Suspect]
     Indication: BRONCHITIS
  2. LEVAQUIN [Suspect]
     Indication: TRACHEITIS

REACTIONS (3)
  - PAIN IN EXTREMITY [None]
  - PAINFUL ERECTION [None]
  - PENIS DISORDER [None]
